FAERS Safety Report 8342950-X (Version None)
Quarter: 2012Q2

REPORT INFORMATION
  Report Type: 
  Country: None (occurrence: None)
  Receive Date: 20120504
  Receipt Date: 20120504
  Transmission Date: 20120825
  Serious: No
  Sender: FDA-Public Use
  Company Number: None

PATIENT
  Age: 76 Year
  Sex: Male

DRUGS (7)
  1. REVLIMID [Suspect]
     Indication: MULTIPLE MYELOMA
     Dosage: 25MG DAILY ORALLY
     Route: 048
     Dates: start: 20120201
  2. DRONABINOL [Concomitant]
  3. TRIAMCINOLANE CREAM [Concomitant]
  4. HYDROMORPHONE HCL [Concomitant]
  5. LACTULOSE [Concomitant]
  6. ACYCLOVIR [Concomitant]
  7. SIMVASTATIN [Concomitant]

REACTIONS (2)
  - RASH ERYTHEMATOUS [None]
  - RASH GENERALISED [None]
